FAERS Safety Report 5418224-3 (Version None)
Quarter: 2007Q3

REPORT INFORMATION
  Report Type: 
  Country: None (occurrence: None)
  Receive Date: 20070817
  Receipt Date: 20070807
  Transmission Date: 20080115
  Serious: Yes (Other)
  Sender: FDA-Public Use
  Company Number: US-ROCHE-510774

PATIENT
  Age: 59 Year
  Sex: Female

DRUGS (7)
  1. VALIUM [Suspect]
     Indication: ANXIETY
     Route: 065
  2. KLONOPIN [Suspect]
     Indication: PANIC REACTION
     Route: 065
  3. ANTIDEPRESSANTS [Suspect]
     Indication: DEPRESSION
     Route: 065
  4. ESTRACE [Concomitant]
  5. PROGESTERONE [Concomitant]
  6. PROVERA [Concomitant]
  7. TOPROL-XL [Concomitant]

REACTIONS (8)
  - AGITATION [None]
  - ANXIETY [None]
  - DEPRESSION [None]
  - DRUG EFFECT DECREASED [None]
  - FEAR [None]
  - HAIR GROWTH ABNORMAL [None]
  - OVARIAN CYST [None]
  - PANIC REACTION [None]
